FAERS Safety Report 7361226-0 (Version None)
Quarter: 2011Q1

REPORT INFORMATION
  Report Type: 
  Country: None (occurrence: None)
  Receive Date: 20110318
  Receipt Date: 20110307
  Transmission Date: 20110831
  Serious: Yes (Other)
  Sender: FDA-Public Use
  Company Number: PHFR2010GB05685

PATIENT
  Sex: Male

DRUGS (7)
  1. LANSOPRAZOLE [Concomitant]
     Indication: PEPTIC ULCER
     Dosage: 30MG DIALY
  2. PIOGLITAZONE [Concomitant]
     Indication: DIABETES MELLITUS
     Dosage: 45MG DAILY
     Route: 048
  3. CLOZARIL [Suspect]
     Dosage: 400MG DAILY
     Route: 048
  4. CLOZARIL [Suspect]
     Indication: SCHIZOPHRENIA
     Dosage: UNK
     Route: 048
     Dates: start: 20100301
  5. HYOSCINE HBR HYT [Concomitant]
  6. GLICLAZIDE [Concomitant]
     Dosage: 160MG DAILY
     Route: 048
  7. METFORMIN HCL [Concomitant]
     Indication: DIABETES MELLITUS
     Dosage: 2550MCG DAILY
     Route: 048

REACTIONS (3)
  - TOOTHACHE [None]
  - PAROTITIS [None]
  - SWELLING FACE [None]
